FAERS Safety Report 8501265-7 (Version None)
Quarter: 2012Q3

REPORT INFORMATION
  Report Type: 
  Country: None (occurrence: None)
  Receive Date: 20120710
  Receipt Date: 20120709
  Transmission Date: 20120928
  Serious: Yes (Other)
  Sender: FDA-Public Use
  Company Number: US-PURDUE-USA-2012-0086609

PATIENT
  Sex: Male
  Weight: 61.633 kg

DRUGS (2)
  1. OXYCONTIN [Suspect]
     Indication: INTERVERTEBRAL DISC DEGENERATION
     Dosage: 40 MG, 1 TAB IN AM, 2 TABS AT NOON AND 1 TAB EVENING
  2. OXYCONTIN [Suspect]
     Indication: NEUROPATHY PERIPHERAL
     Dosage: 160 MG, DAILY
     Dates: start: 20120101

REACTIONS (1)
  - LIVER TRANSPLANT REJECTION [None]
